FAERS Safety Report 7493887-X (Version None)
Quarter: 2011Q2

REPORT INFORMATION
  Report Type: 
  Country: None (occurrence: None)
  Receive Date: 20110520
  Receipt Date: 20110516
  Transmission Date: 20111010
  Serious: Yes (Other)
  Sender: FDA-Public Use
  Company Number: US-ABBOTT-11P-163-0726847-00

PATIENT
  Age: 56 Year
  Sex: Female

DRUGS (9)
  1. VITAMIN C [Concomitant]
     Indication: VITAMIN SUPPLEMENTATION
  2. FLECAINIDE ACETATE [Concomitant]
     Indication: HEART RATE IRREGULAR
  3. HUMIRA [Suspect]
     Indication: PSORIASIS
     Dates: start: 20060101, end: 20060901
  4. CALCIUM CARBONATE [Concomitant]
     Indication: MINERAL SUPPLEMENTATION
  5. SIMVASTATIN [Concomitant]
     Indication: BLOOD CHOLESTEROL INCREASED
  6. MULTI-VITAMINS [Concomitant]
     Indication: VITAMIN SUPPLEMENTATION
  7. METOPROLOL TARTRATE [Concomitant]
     Indication: HEART RATE IRREGULAR
  8. FOLIC ACID [Concomitant]
     Indication: VITAMIN SUPPLEMENTATION
  9. ASPIRIN [Concomitant]
     Indication: PRODUCT USED FOR UNKNOWN INDICATION

REACTIONS (3)
  - FEELING ABNORMAL [None]
  - BUNION [None]
  - VISION BLURRED [None]
